FAERS Safety Report 4844524-1 (Version None)
Quarter: 2005Q4

REPORT INFORMATION
  Report Type: 
  Country: None (occurrence: None)
  Receive Date: 20051201
  Receipt Date: 20051201
  Transmission Date: 20060501
  Serious: Yes (Hospitalization)
  Sender: FDA-Public Use
  Company Number: None

PATIENT
  Age: 62 Year
  Sex: Male
  Weight: 85 kg

DRUGS (5)
  1. CELL TRANSPLANT (CMV PP65 SPECIFIC T-CELLS, CD3+) [Suspect]
     Indication: MYELOID METAPLASIA
     Dosage: 8.25 X 10.6 CELLS, IV
     Route: 042
     Dates: start: 20051102
  2. FLUDARABINE [Concomitant]
  3. CYTOXAN [Concomitant]
  4. CAMPATH [Concomitant]
  5. SCT [Concomitant]

REACTIONS (3)
  - DYSURIA [None]
  - HAEMATURIA [None]
  - INFUSION RELATED REACTION [None]
